FAERS Safety Report 8317089-X (Version None)
Quarter: 2012Q2

REPORT INFORMATION
  Report Type: 
  Country: None (occurrence: None)
  Receive Date: 20120427
  Receipt Date: 20120424
  Transmission Date: 20120825
  Serious: Yes (Hospitalization, Other)
  Sender: FDA-Public Use
  Company Number: CH-PFIZER INC-2012100915

PATIENT
  Age: 83 Year
  Sex: Female

DRUGS (8)
  1. XANAX [Concomitant]
     Dosage: UNK
  2. PLAVIX [Concomitant]
     Dosage: UNK
  3. ALDACTONE [Suspect]
     Dosage: 25 MG, 1X/DAY
     Route: 048
     Dates: end: 20110731
  4. BACTRIM DS [Suspect]
     Dosage: 1 DF, 2X/DAY
     Route: 048
     Dates: start: 20110701, end: 20110730
  5. ATENOLOL [Concomitant]
     Dosage: UNK
  6. PANTOPRAZOLE [Concomitant]
     Dosage: UNK
  7. ATORVASTATIN CALCIUM [Concomitant]
     Dosage: UNK
  8. DIOVAN HCT [Suspect]
     Dosage: 1 DF DAILY (160/25 MG TABLETS)
     Route: 048
     Dates: end: 20110731

REACTIONS (4)
  - GASTROENTERITIS [None]
  - METABOLIC ACIDOSIS [None]
  - RENAL FAILURE ACUTE [None]
  - HYPERKALAEMIA [None]
